FAERS Safety Report 6404840-9 (Version None)
Quarter: 2009Q4

REPORT INFORMATION
  Report Type: 
  Country: None (occurrence: None)
  Receive Date: 20091016
  Receipt Date: 20091008
  Transmission Date: 20100525
  Serious: Yes (Hospitalization)
  Sender: FDA-Public Use
  Company Number: FR-AMGEN-US368931

PATIENT
  Sex: Female

DRUGS (2)
  1. ENBREL [Suspect]
     Indication: JUVENILE ARTHRITIS
     Dosage: 25 MG EVERY 10 TO 15 DAYS
     Route: 058
     Dates: start: 20030101, end: 20090801
  2. ENBREL [Suspect]
     Route: 058
     Dates: start: 20090901

REACTIONS (5)
  - HYPOAESTHESIA [None]
  - MOBILITY DECREASED [None]
  - MONONEURITIS [None]
  - PAIN IN EXTREMITY [None]
  - VARICELLA [None]
